FAERS Safety Report 12286557 (Version 1)
Quarter: 2016Q2

REPORT INFORMATION
  Report Type: Spontaneous
  Country: US (occurrence: US)
  Receive Date: 20160420
  Receipt Date: 20160420
  Transmission Date: 20160815
  Serious: Yes (Other)
  Sender: FDA-Public Use
  Company Number: US-VALIDUS PHARMACEUTICALS LLC-US-2016VAL001087

PATIENT

DRUGS (1)
  1. METOPROLOL. [Suspect]
     Active Substance: METOPROLOL
     Indication: ATRIAL FIBRILLATION
     Dosage: UNK

REACTIONS (5)
  - Swelling face [Unknown]
  - Chapped lips [Not Recovered/Not Resolved]
  - Dyspnoea [Unknown]
  - Atrial fibrillation [Unknown]
  - Lip swelling [Not Recovered/Not Resolved]

NARRATIVE: CASE EVENT DATE: 20150821
